FAERS Safety Report 5029811-9 (Version None)
Quarter: 2006Q2

REPORT INFORMATION
  Report Type: 
  Country: None (occurrence: None)
  Receive Date: 20060614
  Receipt Date: 20060605
  Transmission Date: 20061013
  Serious: Yes (Other)
  Sender: FDA-Public Use
  Company Number: 2006-06-0369

PATIENT
  Age: 42 Year
  Sex: Female

DRUGS (7)
  1. PEG-INTRON [Suspect]
     Indication: HEPATITIS C
     Dosage: SUBCUTANEOUS
     Route: 058
     Dates: start: 20060201
  2. REBETOL [Suspect]
     Indication: HEPATITIS C
     Dosage: ORAL
     Route: 048
     Dates: start: 20060201
  3. MIDRIN [Suspect]
     Indication: MIGRAINE
  4. CELEXA [Concomitant]
  5. NEXIUM [Concomitant]
  6. OXYCODONE HYDROCHLORIDE CAPSULES [Concomitant]
  7. PHENERGAN TABLETS [Concomitant]

REACTIONS (10)
  - ABDOMINAL PAIN UPPER [None]
  - DECREASED APPETITE [None]
  - DEHYDRATION [None]
  - DEPRESSION [None]
  - DIARRHOEA [None]
  - HAEMATOCRIT DECREASED [None]
  - HAEMOGLOBIN DECREASED [None]
  - MIGRAINE [None]
  - PNEUMONIA [None]
  - SYNCOPE [None]
